FAERS Safety Report 7262080-8 (Version None)
Quarter: 2011Q1

REPORT INFORMATION
  Report Type: 
  Country: None (occurrence: None)
  Receive Date: 20110130
  Receipt Date: 20101213
  Transmission Date: 20110831
  Serious: No
  Sender: FDA-Public Use
  Company Number: US-ABBOTT-10P-163-0691366-00

PATIENT
  Sex: Male

DRUGS (4)
  1. AMBIEN [Concomitant]
     Indication: POOR QUALITY SLEEP
  2. HUMIRA [Suspect]
     Indication: PSORIASIS
     Dates: start: 20090101
  3. HYDROXYZINE [Concomitant]
     Indication: HYPERSENSITIVITY
  4. EFFEXOR [Concomitant]
     Indication: DEPRESSION

REACTIONS (2)
  - PSORIASIS [None]
  - DRUG INEFFECTIVE [None]
